FAERS Safety Report 8471868-7 (Version None)
Quarter: 2012Q2

REPORT INFORMATION
  Report Type: 
  Country: None (occurrence: None)
  Receive Date: 20120627
  Receipt Date: 20120619
  Transmission Date: 20120825
  Serious: Yes (Hospitalization, Other)
  Sender: FDA-Public Use
  Company Number: US-BAYER-2012-062486

PATIENT
  Age: 28 Year
  Sex: Female
  Weight: 91 kg

DRUGS (2)
  1. ALBUTEROL [Concomitant]
     Indication: POLYCYSTIC OVARIES
  2. YASMIN [Suspect]
     Indication: CONTRACEPTION

REACTIONS (2)
  - PULMONARY EMBOLISM [None]
  - DEEP VEIN THROMBOSIS [None]
